FAERS Safety Report 4550524-1 (Version None)
Quarter: 2004Q4

REPORT INFORMATION
  Report Type: 
  Country: None (occurrence: None)
  Receive Date: 20041227
  Receipt Date: 20041111
  Transmission Date: 20050328
  Serious: No
  Sender: FDA-Public Use
  Company Number: 04P-163-0280667-00

PATIENT
  Age: 77 Year
  Sex: Female
  Weight: 81.6475 kg

DRUGS (9)
  1. HUMIRA [Suspect]
     Indication: RHEUMATOID ARTHRITIS
     Dosage: 40 MG, 1 IN 2 WK, SUBCUTANEOUS
     Route: 058
     Dates: start: 20040501
  2. PREDNISONE [Concomitant]
  3. RISEDRONATE SODIUM [Concomitant]
  4. FOLIC ACID [Concomitant]
  5. IRON [Concomitant]
  6. ASPIRIN [Concomitant]
  7. ALENDRONATE SODIUM [Concomitant]
  8. METHOTREXATE [Concomitant]
  9. FOLINIC ACID [Concomitant]

REACTIONS (1)
  - RASH MACULO-PAPULAR [None]
